FAERS Safety Report 4559856-4 (Version None)
Quarter: 2005Q1

REPORT INFORMATION
  Report Type: 
  Country: None (occurrence: None)
  Receive Date: 20050107
  Receipt Date: 20040123
  Transmission Date: 20050727
  Serious: No
  Sender: FDA-Public Use
  Company Number: 03P-163-0240308-00

PATIENT
  Age: 21 Month
  Sex: Female
  Weight: 11.7935 kg

DRUGS (1)
  1. OMNICEF [Suspect]
     Indication: UPPER RESPIRATORY TRACT INFECTION
     Dosage: PER ORAL
     Route: 048
     Dates: start: 20031026, end: 20031029

REACTIONS (2)
  - NEUTROPHIL COUNT DECREASED [None]
  - THROMBOCYTOPENIA [None]
